FAERS Safety Report 25009108 (Version 1)
Quarter: 2025Q1

REPORT INFORMATION
  Report Type: Spontaneous
  Country: FR (occurrence: FR)
  Receive Date: 20250225
  Receipt Date: 20250225
  Transmission Date: 20250409
  Serious: Yes (Life-Threatening)
  Sender: PFIZER
  Company Number: None

PATIENT
  Age: 65 Year
  Sex: Male

DRUGS (5)
  1. FLUOROURACIL [Suspect]
     Active Substance: FLUOROURACIL
     Indication: Squamous cell carcinoma
     Route: 042
     Dates: start: 20250115, end: 20250117
  2. OXALIPLATIN [Suspect]
     Active Substance: OXALIPLATIN
     Indication: Squamous cell carcinoma
     Route: 042
     Dates: start: 20250115
  3. NIVOLUMAB [Suspect]
     Active Substance: NIVOLUMAB
     Indication: Oesophageal squamous cell carcinoma
     Route: 042
     Dates: start: 20250115, end: 20250115
  4. IOBITRIDOL [Suspect]
     Active Substance: IOBITRIDOL
     Indication: Imaging procedure
     Route: 042
     Dates: start: 20250127, end: 20250127
  5. VENOFER [Suspect]
     Active Substance: IRON SUCROSE
     Indication: Iron deficiency anaemia
     Route: 042

REACTIONS (3)
  - Stevens-Johnson syndrome [Not Recovered/Not Resolved]
  - Toxic epidermal necrolysis [Not Recovered/Not Resolved]
  - Off label use [Unknown]

NARRATIVE: CASE EVENT DATE: 20250115
